FAERS Safety Report 7320938-5 (Version None)
Quarter: 2011Q1

REPORT INFORMATION
  Report Type: 
  Country: None (occurrence: None)
  Receive Date: 20110228
  Receipt Date: 20110211
  Transmission Date: 20110831
  Serious: Yes (Other)
  Sender: FDA-Public Use
  Company Number: FR-ROCHE-761178

PATIENT
  Sex: Female

DRUGS (1)
  1. BONIVA [Suspect]
     Dosage: DOSE REPORTED AS 1 TABLET. FREQUENCY: MONTHLY
     Route: 065
     Dates: start: 20090101

REACTIONS (3)
  - TOOTHACHE [None]
  - DENTAL NECROSIS [None]
  - APICAL GRANULOMA [None]
